FAERS Safety Report 5849706-8 (Version None)
Quarter: 2008Q3

REPORT INFORMATION
  Report Type: 
  Country: None (occurrence: None)
  Receive Date: 20080815
  Receipt Date: 20080806
  Transmission Date: 20090109
  Serious: Yes (Hospitalization)
  Sender: FDA-Public Use
  Company Number: CAP08000250

PATIENT
  Age: 67 Year
  Sex: Male

DRUGS (3)
  1. ACTONEL [Suspect]
     Indication: OSTEOPOROSIS
     Dosage: 35 MG ONCE WEEKLY, ORAL
     Route: 048
     Dates: start: 20061001, end: 20080201
  2. APO-PINDOLOL (PINDOLOL) [Concomitant]
  3. MORPHINE (MORPHINE)PATCH [Concomitant]

REACTIONS (1)
  - OESOPHAGEAL CARCINOMA [None]
